FAERS Safety Report 13980964 (Version 1)
Quarter: 2017Q3

REPORT INFORMATION
  Report Type: Spontaneous
  Country: US (occurrence: US)
  Receive Date: 20170918
  Receipt Date: 20170918
  Transmission Date: 20171128
  Serious: No
  Sender: FDA-Public Use
  Company Number: US-TEVA-749522ACC

PATIENT
  Age: 75 Year
  Sex: Male
  Weight: 67.12 kg

DRUGS (4)
  1. LOSARTAN. [Concomitant]
     Active Substance: LOSARTAN
  2. ELIQUIS [Concomitant]
     Active Substance: APIXABAN
  3. FEXOFENADINE [Suspect]
     Active Substance: FEXOFENADINE\FEXOFENADINE HYDROCHLORIDE
     Indication: PRURITUS
     Dosage: 180 MILLIGRAM DAILY;
     Route: 048
     Dates: start: 20170226, end: 20170227
  4. ALLOPURINOL. [Concomitant]
     Active Substance: ALLOPURINOL

REACTIONS (3)
  - Drug administered to patient of inappropriate age [Unknown]
  - Condition aggravated [Unknown]
  - Off label use [Unknown]

NARRATIVE: CASE EVENT DATE: 20170226
